FAERS Safety Report 17566159 (Version 1)
Quarter: 2020Q1

REPORT INFORMATION
  Report Type: Spontaneous
  Country: CA (occurrence: CA)
  Receive Date: 20200320
  Receipt Date: 20200320
  Transmission Date: 20200409
  Serious: Yes (Other)
  Sender: FDA-Public Use
  Company Number: CA-PFIZER INC-2020118924

PATIENT
  Age: 56 Year
  Sex: Male

DRUGS (2)
  1. REMICADE [Concomitant]
     Active Substance: INFLIXIMAB
     Dosage: 500 MG, EVERY 6 WEEKS
     Dates: start: 200611
  2. TOFACITINIB CITRATE [Suspect]
     Active Substance: TOFACITINIB CITRATE
     Indication: SPONDYLITIS
     Dosage: UNK
     Dates: start: 201912

REACTIONS (6)
  - Product use in unapproved indication [Unknown]
  - Off label use [Unknown]
  - Pruritus [Recovering/Resolving]
  - Skin fissures [Recovering/Resolving]
  - Haemorrhage [Recovering/Resolving]
  - Product use issue [Unknown]
